FAERS Safety Report 10582275 (Version 1)
Quarter: 2014Q4

REPORT INFORMATION
  Report Type: Spontaneous
  Country: BR (occurrence: BR)
  Receive Date: 20141113
  Receipt Date: 20141113
  Transmission Date: 20150529
  Serious: Yes (Hospitalization, Other)
  Sender: FDA-Public Use
  Company Number: BR-PFIZER INC-2014307398

PATIENT
  Age: 40 Year
  Sex: Female

DRUGS (3)
  1. CENTRUM [Concomitant]
     Active Substance: VITAMINS
     Dosage: UNK UNK, DAILY
     Route: 065
  2. RITALIN [Concomitant]
     Active Substance: METHYLPHENIDATE HYDROCHLORIDE
     Dosage: UNK
     Route: 065
  3. ATENOLOL. [Suspect]
     Active Substance: ATENOLOL
     Indication: HYPERTENSION
     Dosage: 50 MG, 2X/DAY
     Route: 048
     Dates: start: 2005, end: 201310

REACTIONS (8)
  - Blood pressure increased [Recovered/Resolved]
  - Psoriatic arthropathy [Unknown]
  - Off label use [Recovered/Resolved]
  - Psychiatric symptom [Not Recovered/Not Resolved]
  - Fatigue [Not Recovered/Not Resolved]
  - Arrhythmia [Unknown]
  - Headache [Unknown]
  - Drug ineffective [Unknown]

NARRATIVE: CASE EVENT DATE: 2005
